FAERS Safety Report 7051290-0 (Version None)
Quarter: 2010Q4

REPORT INFORMATION
  Report Type: 
  Country: None (occurrence: None)
  Receive Date: 20101014
  Receipt Date: 20101004
  Transmission Date: 20110411
  Serious: Yes (Hospitalization)
  Sender: FDA-Public Use
  Company Number: DSU-2010-05229

PATIENT
  Age: 52 Year
  Sex: Male
  Weight: 113.3993 kg

DRUGS (1)
  1. AZOR [Suspect]
     Indication: HYPERTENSION
     Dosage: 10/20MG (QD), PER ORAL
     Route: 048
     Dates: start: 20090401

REACTIONS (2)
  - ACCIDENT AT WORK [None]
  - HIP ARTHROPLASTY [None]
